FAERS Safety Report 20048744 (Version 1)
Quarter: 2021Q4

REPORT INFORMATION
  Report Type: Spontaneous
  Country: JP (occurrence: JP)
  Receive Date: 20211109
  Receipt Date: 20211109
  Transmission Date: 20220303
  Serious: Yes (Death, Other)
  Sender: FDA-Public Use
  Company Number: JP-MALLINCKRODT-T202104959

PATIENT
  Age: 10 Day
  Sex: Male

DRUGS (7)
  1. NITRIC OXIDE [Suspect]
     Active Substance: NITRIC OXIDE
     Indication: Pulmonary hypertension
     Dosage: UNK (VIA INHALATION)
     Route: 055
  2. PROSTAGLANDIN E1 [Suspect]
     Active Substance: ALPROSTADIL
     Indication: Pulmonary vascular resistance abnormality
     Dosage: UNK
     Route: 065
  3. PROSTAGLANDIN E1 [Suspect]
     Active Substance: ALPROSTADIL
     Indication: Patent ductus arteriosus
  4. MIDAZOLAM [Concomitant]
     Active Substance: MIDAZOLAM
     Indication: Sedative therapy
     Dosage: UNK
     Route: 040
  5. FENTANYL [Concomitant]
     Active Substance: FENTANYL
     Indication: Sedative therapy
     Dosage: UNK
     Route: 065
  6. ROCURONIUM [Concomitant]
     Active Substance: ROCURONIUM BROMIDE
     Indication: Hypocapnia
     Dosage: UNK
     Route: 065
  7. ROCURONIUM [Concomitant]
     Active Substance: ROCURONIUM BROMIDE
     Indication: Respiratory alkalosis

REACTIONS (4)
  - Alveolar capillary dysplasia [Fatal]
  - Harlequin skin reaction [Not Recovered/Not Resolved]
  - Blood pressure decreased [Unknown]
  - Therapy non-responder [Recovered/Resolved]
